FAERS Safety Report 24237624 (Version 1)
Quarter: 2024Q3

REPORT INFORMATION
  Report Type: Spontaneous
  Country: DK (occurrence: DK)
  Receive Date: 20240822
  Receipt Date: 20240822
  Transmission Date: 20241016
  Serious: Yes (Other)
  Sender: NOVA LABORATORIES
  Company Number: DK-Nova Laboratories Limited-2160723

PATIENT
  Age: 15 Year
  Sex: Female

DRUGS (1)
  1. XROMI [Suspect]
     Active Substance: HYDROXYUREA
     Indication: Sickle cell anaemia with crisis

REACTIONS (3)
  - Vernal keratoconjunctivitis [Unknown]
  - Lichen sclerosus [Unknown]
  - Dermatitis atopic [Unknown]
